FAERS Safety Report 9848067 (Version 1)
Quarter: 2014Q1

REPORT INFORMATION
  Report Type: Spontaneous
  Country: US (occurrence: None)
  Receive Date: 20140124
  Receipt Date: 20140124
  Transmission Date: 20141002
  Serious: Yes (Death)
  Sender: FDA-Public Use
  Company Number: None

PATIENT
  Age: 62 Year
  Sex: Female
  Weight: 86.18 kg

DRUGS (1)
  1. REVLIMID [Suspect]
     Indication: NEOPLASM MALIGNANT
     Route: 048
     Dates: start: 20121114, end: 20130312

REACTIONS (2)
  - Acute myeloid leukaemia [None]
  - No therapeutic response [None]
